FAERS Safety Report 17119369 (Version 4)
Quarter: 2020Q1

REPORT INFORMATION
  Report Type: Report from Study
  Country: None (occurrence: CH)
  Receive Date: 20191206
  Receipt Date: 20200304
  Transmission Date: 20200409
  Serious: Yes (Hospitalization)
  Sender: FDA-Public Use
  Company Number: CH-ABBVIE-19K-151-3181260-00

PATIENT
  Age: 84 Year
  Sex: Male

DRUGS (5)
  1. DUODOPA [Suspect]
     Active Substance: CARBIDOPA\LEVODOPA
     Indication: PARKINSON^S DISEASE
     Route: 050
     Dates: start: 20190401, end: 20190415
  2. DUODOPA [Suspect]
     Active Substance: CARBIDOPA\LEVODOPA
     Dosage: MD:5 ML, CRD: 3.9 ML/H, CRN:3.0 ML/H, ED: 2 ML?24H THERAPY
     Route: 050
     Dates: start: 202001
  3. DUODOPA [Suspect]
     Active Substance: CARBIDOPA\LEVODOPA
     Dosage: MD: 5 ML, CRD: 3.9 ML/H, CRN:3.0 ML/H, ED: 2 ML?24H THERAPY
     Route: 050
     Dates: start: 20190430, end: 202001
  4. DUODOPA [Suspect]
     Active Substance: CARBIDOPA\LEVODOPA
     Dosage: MD:3.9 ML, CRD: 3.9 ML/H, CRN:3.0 ML/H, ED: 2 ML?24H THERAPY
     Route: 050
     Dates: start: 202001, end: 202001
  5. DUODOPA [Suspect]
     Active Substance: CARBIDOPA\LEVODOPA
     Dosage: MD: 5 ML, CRD: 3.9 ML/H, CRN: 2.7 ML/H, ED: 2 ML?24H THERAPY
     Route: 050
     Dates: start: 20190415, end: 20190430

REACTIONS (5)
  - Hip fracture [Recovered/Resolved]
  - Wrong technique in device usage process [Recovered/Resolved]
  - Bradykinesia [Unknown]
  - Bone pain [Not Recovered/Not Resolved]
  - Fall [Recovered/Resolved]

NARRATIVE: CASE EVENT DATE: 20191202
